FAERS Safety Report 5353092-X (Version None)
Quarter: 2007Q2

REPORT INFORMATION
  Report Type: 
  Country: None (occurrence: None)
  Receive Date: 20070611
  Receipt Date: 20070530
  Transmission Date: 20071010
  Serious: Yes (Other)
  Sender: FDA-Public Use
  Company Number: FR-PFIZER INC-2007045217

PATIENT
  Sex: Female

DRUGS (2)
  1. CHAMPIX [Suspect]
     Indication: EX-SMOKER
  2. LEXOMIL [Concomitant]
     Indication: SLEEP DISORDER

REACTIONS (6)
  - ABDOMINAL PAIN UPPER [None]
  - DECREASED APPETITE [None]
  - DEPRESSION [None]
  - EXPRESSIVE LANGUAGE DISORDER [None]
  - FATIGUE [None]
  - WEIGHT DECREASED [None]
